FAERS Safety Report 6538778-3 (Version None)
Quarter: 2010Q1

REPORT INFORMATION
  Report Type: 
  Country: None (occurrence: None)
  Receive Date: 20100115
  Receipt Date: 20100107
  Transmission Date: 20100710
  Serious: Yes (Hospitalization)
  Sender: FDA-Public Use
  Company Number: US-JNJFOC-20091206881

PATIENT
  Age: 3 Day

DRUGS (2)
  1. ACETAMINOPHEN [Suspect]
  2. ACETAMINOPHEN [Suspect]
     Indication: DRUG USE FOR UNKNOWN INDICATION
     Dosage: 151 MG/KG THREE TIMES OVER 24 HOURS (453 MG/KG TOTAL)

REACTIONS (2)
  - ACCIDENTAL OVERDOSE [None]
  - DRUG HALF-LIFE INCREASED [None]
